FAERS Safety Report 8446556-3 (Version None)
Quarter: 2012Q2

REPORT INFORMATION
  Report Type: 
  Country: None (occurrence: None)
  Receive Date: 20120618
  Receipt Date: 20120611
  Transmission Date: 20120825
  Serious: Yes (Other)
  Sender: FDA-Public Use
  Company Number: CHPA2012NO011509

PATIENT
  Age: 39 Year
  Sex: Female

DRUGS (4)
  1. CORTISONE ACETATE [Concomitant]
  2. IBUPROFEN [Concomitant]
     Indication: PAIN
     Dosage: UNK DF, PRN
  3. OTRIVIN [Suspect]
     Dosage: 3-4 TIMES PER DAY, OVER 35 YEARS
  4. ACETAMINOPHEN [Concomitant]
     Indication: PAIN
     Dosage: UNK DF, PRN

REACTIONS (3)
  - INCORRECT DRUG ADMINISTRATION DURATION [None]
  - DRUG DEPENDENCE [None]
  - THERAPEUTIC RESPONSE DECREASED [None]
